FAERS Safety Report 4443971-X (Version None)
Quarter: 2004Q3

REPORT INFORMATION
  Report Type: 
  Country: None (occurrence: None)
  Receive Date: 20040729
  Receipt Date: 20030604
  Transmission Date: 20050211
  Serious: Yes (Other)
  Sender: FDA-Public Use
  Company Number: KII-2003-0010188

PATIENT
  Sex: Male

DRUGS (4)
  1. MS CONTIN [Suspect]
     Indication: PAIN
  2. MORPHINE SULFATE [Suspect]
     Indication: PAIN
  3. OXYCODONE HCL [Suspect]
     Indication: PAIN
  4. DURAGESIC [Suspect]
     Indication: PAIN
     Dosage: 100 MCG,

REACTIONS (1)
  - DRUG DEPENDENCE [None]
